FAERS Safety Report 8211775-8 (Version None)
Quarter: 2012Q1

REPORT INFORMATION
  Report Type: 
  Country: None (occurrence: None)
  Receive Date: 20120315
  Receipt Date: 20120312
  Transmission Date: 20120608
  Serious: Yes (Life-Threatening, Hospitalization)
  Sender: FDA-Public Use
  Company Number: DE-PFIZER INC-2009241011

PATIENT
  Age: 77 Year
  Sex: Female
  Weight: 71 kg

DRUGS (13)
  1. CALCIUM D3 ^STADA^ [Concomitant]
     Indication: OSTEOPOROSIS
     Dosage: UNK
     Dates: start: 20060101
  2. METHOTREXATE [Concomitant]
     Indication: RHEUMATOID ARTHRITIS
     Dosage: 25 MG, 1X/DAY
     Route: 048
     Dates: start: 20090202, end: 20090216
  3. LEVOTHYROXINE SODIUM [Concomitant]
     Indication: THYROID FUNCTION TEST ABNORMAL
     Dosage: 100 UG, 1X/DAY
     Route: 048
     Dates: start: 19960101
  4. VERAPAMIL HCL [Interacting]
     Indication: ATRIAL FIBRILLATION
     Dosage: 240 MG, 1X/DAY
     Route: 048
     Dates: start: 20060101, end: 20090514
  5. VOLTAREN [Suspect]
     Indication: RHEUMATOID ARTHRITIS
     Dosage: 75 MG, 2X/DAY
     Route: 048
     Dates: start: 20060901, end: 20090516
  6. AMBROXOL [Concomitant]
     Indication: BRONCHITIS
     Dosage: 15 MG, 3X/DAY
     Route: 048
     Dates: start: 20090501, end: 20090511
  7. ESIDRIX [Concomitant]
     Indication: HYPERTENSION
     Dosage: 25 MG, 1X/DAY
     Route: 048
     Dates: start: 20070101
  8. FOSAMAX [Concomitant]
     Indication: OSTEOPOROSIS
     Dosage: 70 MG, 1X/DAY
     Route: 048
     Dates: start: 20060101
  9. PREDNISOLONE [Suspect]
     Indication: RHEUMATOID ARTHRITIS
     Dosage: 15 MG, 1X/DAY
     Route: 048
     Dates: start: 20060901
  10. AZITHROMYCIN [Interacting]
     Indication: BRONCHITIS
     Dosage: UNK
     Dates: start: 20090501, end: 20090511
  11. SYMBICORT [Concomitant]
     Indication: BRONCHITIS
     Dosage: 1 DF, 3X/DAY
     Route: 055
     Dates: start: 20090501
  12. DIGITOXIN [Interacting]
     Indication: ATRIAL FIBRILLATION
     Dosage: 0.07 MG, 1X/DAY
     Route: 048
     Dates: start: 20070901, end: 20090514
  13. ACETYLSALICYLIC ACID [Concomitant]
     Indication: CORONARY ARTERY DISEASE
     Dosage: 100 MG, 1X/DAY
     Route: 048
     Dates: start: 20080501

REACTIONS (3)
  - TOXICITY TO VARIOUS AGENTS [None]
  - DRUG INTERACTION [None]
  - PULMONARY EMBOLISM [None]
